FAERS Safety Report 7119079-1 (Version None)
Quarter: 2010Q4

REPORT INFORMATION
  Report Type: 
  Country: None (occurrence: None)
  Receive Date: 20101123
  Receipt Date: 20101116
  Transmission Date: 20110411
  Serious: Yes (Life-Threatening)
  Sender: FDA-Public Use
  Company Number: B0684100A

PATIENT
  Sex: Male

DRUGS (1)
  1. AUGMENTIN '125' [Suspect]
     Indication: INFECTION
     Dosage: 1G UNKNOWN
     Route: 042
     Dates: start: 20101104

REACTIONS (1)
  - ANAPHYLACTIC SHOCK [None]
